FAERS Safety Report 9276288 (Version 2)
Quarter: 2013Q2

REPORT INFORMATION
  Report Type: Spontaneous
  Country: US (occurrence: US)
  Receive Date: 20130507
  Receipt Date: 20130515
  Transmission Date: 20140414
  Serious: Yes (Hospitalization)
  Sender: FDA-Public Use
  Company Number: US-PFIZER INC-2013138806

PATIENT
  Age: 78 Year
  Sex: Female
  Weight: 77.6 kg

DRUGS (8)
  1. TIKOSYN [Suspect]
     Indication: ATRIAL FIBRILLATION
     Dosage: 125 UG, 2X/DAY
     Route: 048
     Dates: start: 20130401
  2. DILTIAZEM [Concomitant]
     Dosage: 180 MG, 1X/DAY
  3. PRADAXA [Concomitant]
     Dosage: 150 MG, 1X/DAY
  4. MAGNESIUM [Concomitant]
     Dosage: 400 MG, 2X/DAY
     Route: 048
  5. CLONAZEPAM [Concomitant]
     Dosage: 1 MG, 1X/DAY
     Route: 048
  6. PRILOSEC [Concomitant]
     Dosage: 20 MG, 1X/DAY
  7. KLARON [Concomitant]
     Dosage: 40 MG, 2X/DAY
     Route: 048
  8. EXALGO [Concomitant]
     Dosage: UNK

REACTIONS (1)
  - Cardiac disorder [Unknown]
